FAERS Safety Report 12411993 (Version 1)
Quarter: 2016Q2

REPORT INFORMATION
  Report Type: Spontaneous
  Country: IT (occurrence: IT)
  Receive Date: 20160527
  Receipt Date: 20160527
  Transmission Date: 20160815
  Serious: Yes (Hospitalization)
  Sender: FDA-Public Use
  Company Number: IT-SUN PHARMACEUTICAL INDUSTRIES LTD-2016RR-117400

PATIENT
  Age: 73 Year
  Sex: Male
  Weight: 75 kg

DRUGS (9)
  1. PANTORC 40 MG [Concomitant]
     Indication: GASTROOESOPHAGEAL REFLUX PROPHYLAXIS
     Dosage: 40 MG
     Route: 048
  2. CARBOPLATIN. [Suspect]
     Active Substance: CARBOPLATIN
     Indication: LUNG NEOPLASM MALIGNANT
     Dosage: 289 MG TOTAL
     Route: 042
     Dates: start: 20160208, end: 20160208
  3. OMNIC 0,4 MG [Concomitant]
     Indication: BENIGN PROSTATIC HYPERPLASIA
     Dosage: .4 MG
     Route: 048
  4. ZOLOFT 50 MG [Concomitant]
     Indication: DEPRESSION
     Dosage: 25 MG
     Route: 048
  5. MOVICOL 13.8 G [Concomitant]
     Indication: ASTRINGENT THERAPY
     Dosage: 13.8 G
     Route: 048
  6. JAKAVI 5 MG [Concomitant]
     Indication: MYELOFIBROSIS
     Dosage: 10 MG
     Route: 048
  7. ZYLORIC 300 MG [Concomitant]
     Active Substance: ALLOPURINOL
     Indication: HYPERURICAEMIA
     Dosage: 150 MG
     Route: 048
  8. CARDIOASPIRIN 100 MG [Concomitant]
     Active Substance: ASPIRIN
     Indication: THROMBOSIS PROPHYLAXIS
     Dosage: 100 MG
     Route: 048
  9. PEMETREXED [Suspect]
     Active Substance: PEMETREXED
     Indication: LUNG NEOPLASM MALIGNANT
     Dosage: 547 MG TOTAL
     Route: 065
     Dates: start: 20160208, end: 20160208

REACTIONS (5)
  - Anaemia [Recovered/Resolved]
  - Neutropenia [Recovered/Resolved]
  - Pyrexia [Recovered/Resolved]
  - Cough [Recovered/Resolved]
  - Thrombocytopenia [Recovered/Resolved]

NARRATIVE: CASE EVENT DATE: 20160214
